FAERS Safety Report 13486610 (Version 3)
Quarter: 2017Q2

REPORT INFORMATION
  Report Type: Spontaneous
  Country: US (occurrence: US)
  Receive Date: 20170426
  Receipt Date: 20170613
  Transmission Date: 20170830
  Serious: Yes (Other)
  Sender: FDA-Public Use
  Company Number: US-CELGENEUS-USA-20170404788

PATIENT
  Sex: Male

DRUGS (3)
  1. THALOMID [Suspect]
     Active Substance: THALIDOMIDE
     Indication: LEPROSY
     Dosage: 300 MILLIGRAM
     Route: 048
     Dates: start: 201008
  2. THALOMID [Suspect]
     Active Substance: THALIDOMIDE
     Dosage: 50-200MG
     Route: 048
     Dates: start: 201012
  3. THALOMID [Suspect]
     Active Substance: THALIDOMIDE
     Dosage: 200 MILLIGRAM
     Route: 048
     Dates: start: 201611

REACTIONS (1)
  - Pregnancy of partner [Unknown]
